FAERS Safety Report 20816877 (Version 3)
Quarter: 2022Q3

REPORT INFORMATION
  Report Type: Report from Study
  Country: US (occurrence: US)
  Receive Date: 20220512
  Receipt Date: 20220915
  Transmission Date: 20221027
  Serious: Yes (Hospitalization)
  Sender: FDA-Public Use
  Company Number: US-BRISTOL-MYERS SQUIBB COMPANY-2022-032744

PATIENT
  Age: 64 Year
  Sex: Female
  Weight: 64.72 kg

DRUGS (2)
  1. REVLIMID [Suspect]
     Active Substance: LENALIDOMIDE
     Indication: Plasma cell myeloma
     Route: 065
     Dates: start: 20210711
  2. REVLIMID [Suspect]
     Active Substance: LENALIDOMIDE
     Indication: Illness

REACTIONS (4)
  - Vomiting [Unknown]
  - Cholelithiasis [Unknown]
  - Illness [Unknown]
  - COVID-19 [Unknown]
